FAERS Safety Report 24282029 (Version 1)
Quarter: 2024Q3

REPORT INFORMATION
  Report Type: Spontaneous
  Country: CN (occurrence: CN)
  Receive Date: 20240904
  Receipt Date: 20240904
  Transmission Date: 20241017
  Serious: Yes (Other)
  Sender: PFIZER
  Company Number: CN-PFIZER INC-PV202400114991

PATIENT
  Age: 58 Year
  Sex: Female
  Weight: 56.4 kg

DRUGS (2)
  1. TIGECYCLINE [Suspect]
     Active Substance: TIGECYCLINE
     Indication: Colon cancer
     Dosage: 50 MG, 2X/DAY (12H)
     Route: 041
     Dates: start: 20240702, end: 20240715
  2. TIGECYCLINE [Suspect]
     Active Substance: TIGECYCLINE
     Indication: Abdominal infection

REACTIONS (6)
  - Blood fibrinogen decreased [Recovered/Resolved]
  - Bloody discharge [Unknown]
  - Dizziness [Unknown]
  - Asthenia [Unknown]
  - Nausea [Unknown]
  - Vomiting [Unknown]

NARRATIVE: CASE EVENT DATE: 20240708
